FAERS Safety Report 22537336 (Version 2)
Quarter: 2023Q2

REPORT INFORMATION
  Report Type: Spontaneous
  Country: CN (occurrence: CN)
  Receive Date: 20230608
  Receipt Date: 20230613
  Transmission Date: 20230722
  Serious: Yes (Other)
  Sender: FDA-Public Use
  Company Number: CN-002147023-NVSC2023CN129160

PATIENT
  Age: 37 Year
  Sex: Male
  Weight: 35 kg

DRUGS (4)
  1. VORICONAZOLE [Suspect]
     Active Substance: VORICONAZOLE
     Indication: Antifungal treatment
     Dosage: 0.1 G, BID
     Route: 048
     Dates: start: 20230427, end: 20230520
  2. RITONAVIR [Suspect]
     Active Substance: RITONAVIR
     Indication: Coronavirus infection
     Dosage: 250 MG, BID
     Route: 048
     Dates: start: 20230515, end: 20230519
  3. CEFOPERAZONE SODIUM\SULBACTAM SODIUM [Suspect]
     Active Substance: CEFOPERAZONE SODIUM\SULBACTAM SODIUM
     Indication: Infection
     Dosage: 3 G, TID (POWDER INJECTION)
     Route: 041
     Dates: start: 20230506, end: 20230520
  4. IMIPENEM [Concomitant]
     Active Substance: IMIPENEM
     Indication: Infection
     Dosage: UNK
     Route: 065

REACTIONS (2)
  - Liver injury [Recovering/Resolving]
  - Coronavirus test positive [Unknown]

NARRATIVE: CASE EVENT DATE: 20230515
